FAERS Safety Report 4972658-X (Version None)
Quarter: 2006Q1

REPORT INFORMATION
  Report Type: 
  Country: None (occurrence: None)
  Receive Date: 20060216
  Receipt Date: 20050927
  Transmission Date: 20060701
  Serious: Yes (Hospitalization, Other)
  Sender: FDA-Public Use
  Company Number: 200509IM000552

PATIENT
  Sex: Male

DRUGS (1)
  1. BLINDED THERAPY (INTERFERON GAMMA-1B) [Suspect]
     Indication: IDIOPATHIC PULMONARY FIBROSIS
     Dosage: 2 ML, TIW, SUBCUTANEOUS
     Route: 058
     Dates: start: 20050215

REACTIONS (1)
  - DEPRESSION [None]
